FAERS Safety Report 9011333 (Version 1)
Quarter: 2013Q1

REPORT INFORMATION
  Report Type: Report from Study
  Country: CA (occurrence: CA)
  Receive Date: 20130108
  Receipt Date: 20130108
  Transmission Date: 20140127
  Serious: Yes (Hospitalization)
  Sender: FDA-Public Use
  Company Number: CA-JNJFOC-20130101854

PATIENT
  Age: 65 Year
  Sex: Female
  Weight: 67.3 kg

DRUGS (3)
  1. REMICADE [Suspect]
     Indication: PSORIATIC ARTHROPATHY
     Route: 042
     Dates: start: 20100420
  2. INSULIN [Concomitant]
     Route: 065
  3. ALL OTHER THERAPEUTICS [Concomitant]
     Indication: THYROID DISORDER
     Route: 065

REACTIONS (1)
  - Myocardial infarction [Unknown]
